FAERS Safety Report 5966762-7 (Version None)
Quarter: 2008Q4

REPORT INFORMATION
  Report Type: 
  Country: None (occurrence: None)
  Receive Date: 20081125
  Receipt Date: 20081119
  Transmission Date: 20090506
  Serious: Yes (Hospitalization)
  Sender: FDA-Public Use
  Company Number: US-WYE-H06483008

PATIENT
  Sex: Male
  Weight: 110.78 kg

DRUGS (16)
  1. RELISTOR [Suspect]
     Indication: CONSTIPATION
     Route: 058
     Dates: start: 20080929, end: 20081001
  2. PROVENTIL [Concomitant]
     Dosage: 108 MCG 2 PUFFS QID
     Route: 055
     Dates: start: 20080923
  3. HUMALOG [Concomitant]
     Dosage: 75/25 100 U/ML :52 UNITS AM, 50 UNITS PM
     Route: 058
     Dates: start: 20070923
  4. OLMESARTAN MEDOXOMIL [Concomitant]
     Dosage: 40/25 1 TAB DAILY
     Dates: start: 20080923
  5. AMITIZA [Concomitant]
     Dosage: 24 MCG DAILY
     Dates: start: 20080923
  6. TOCOPHEROL CONCENTRATE CAP [Concomitant]
     Dosage: UNKNOWN
     Dates: start: 20070131
  7. DOCUSATE SODIUM [Concomitant]
     Dates: start: 20070131
  8. GARLIC [Concomitant]
     Dosage: UNKNOWN
     Dates: start: 20070131
  9. FISH OIL, HYDROGENATED [Concomitant]
     Dosage: UNKNOWN
     Dates: start: 20070131
  10. ACETYLSALICYLIC ACID SRT [Concomitant]
     Dates: start: 20050825
  11. ASCORBIC ACID [Concomitant]
     Dosage: UNKNOWN
     Dates: start: 20030630
  12. ASCORBIC ACID/ERGOCALCIFEROL/FOLIC ACID/NICOTINAMIDE/PANTHENOL/RETINOL [Concomitant]
     Dosage: UNKNOWN
     Dates: start: 20030630
  13. GLUCOSAMINE [Concomitant]
     Dosage: UNKNOWN
     Dates: start: 20030630
  14. CALCIUM [Concomitant]
     Dosage: UNKNOWN
     Dates: start: 20030630
  15. POTASSIUM CHLORIDE [Concomitant]
     Dosage: UNKNOWN
     Dates: start: 20030630
  16. AVINZA [Concomitant]
     Indication: PAIN
     Dosage: 30 MG, UNSPECIFIED FREQUENCY

REACTIONS (3)
  - ABDOMINAL PAIN [None]
  - CARDIAC FAILURE CONGESTIVE [None]
  - CONDITION AGGRAVATED [None]
